FAERS Safety Report 8591288 (Version 3)
Quarter: 2013Q1

REPORT INFORMATION
  Report Type: Spontaneous
  Country: JP (occurrence: JP)
  Receive Date: 20120601
  Receipt Date: 20130205
  Transmission Date: 20140127
  Serious: Yes (Other)
  Sender: FDA-Public Use
  Company Number: JP-BRISTOL-MYERS SQUIBB COMPANY-16567455

PATIENT
  Sex: 0

DRUGS (1)
  1. ABILIFY TABS [Suspect]
     Route: 064

REACTIONS (1)
  - Neonatal disorder [Unknown]
